FAERS Safety Report 5622613-1 (Version None)
Quarter: 2008Q1

REPORT INFORMATION
  Report Type: 
  Country: None (occurrence: None)
  Receive Date: 20080211
  Receipt Date: 20080211
  Transmission Date: 20080703
  Serious: Yes (Hospitalization)
  Sender: FDA-Public Use
  Company Number: None

PATIENT
  Age: 59 Year
  Sex: Male

DRUGS (2)
  1. POTASSIUM CHLORIDE [Suspect]
     Indication: HYPERTENSION
     Dosage: 20MEQ  BID  PO
     Route: 048
     Dates: start: 20071030, end: 20071119
  2. LISINOPRIL [Suspect]
     Dosage: 10MG EVERY DAY PO
     Route: 048
     Dates: start: 20070614, end: 20071119

REACTIONS (4)
  - ASTHENIA [None]
  - DIARRHOEA [None]
  - DYSPNOEA [None]
  - HYPERKALAEMIA [None]
